FAERS Safety Report 9778038 (Version 2)
Quarter: 2013Q4

REPORT INFORMATION
  Report Type: Report from Study
  Country: BE (occurrence: BE)
  Receive Date: 20131223
  Receipt Date: 20131223
  Transmission Date: 20140711
  Serious: Yes (Life-Threatening, Hospitalization)
  Sender: FDA-Public Use
  Company Number: BE-CELGENEUS-013-21880-13082224

PATIENT
  Age: 65 Year
  Sex: Male
  Weight: 73.3 kg

DRUGS (25)
  1. REVLIMID [Suspect]
     Indication: PLASMA CELL MYELOMA
     Dosage: 25 MILLIGRAM
     Route: 048
     Dates: start: 20120126, end: 20120215
  2. REVLIMID [Suspect]
     Dosage: 25 MILLIGRAM
     Route: 048
     Dates: start: 20130620, end: 20130710
  3. REVLIMID [Suspect]
     Dosage: 15 MILLIGRAM
     Route: 048
     Dates: start: 20130718, end: 20130807
  4. DEXAMETHASONE [Suspect]
     Indication: PLASMA CELL MYELOMA
     Route: 065
     Dates: start: 20120126, end: 20120216
  5. DEXAMETHASONE [Suspect]
     Route: 065
     Dates: start: 20130620, end: 20130711
  6. CARFILZOMIB [Suspect]
     Indication: PLASMA CELL MYELOMA
     Route: 065
     Dates: start: 20120126, end: 20120127
  7. CARFILZOMIB [Suspect]
     Route: 065
     Dates: start: 20120202, end: 20120210
  8. CARFILZOMIB [Suspect]
     Dosage: 27
     Route: 065
     Dates: start: 20130523, end: 20130607
  9. AVELOX [Concomitant]
     Indication: UPPER RESPIRATORY TRACT INFECTION
     Dosage: 400 MILLIGRAM
     Route: 048
     Dates: start: 20130704, end: 20130714
  10. CIPRAMIL [Concomitant]
     Indication: DEPRESSION
     Dosage: 20 MILLIGRAM
     Route: 048
     Dates: start: 20100914, end: 20130918
  11. CIPROXINE [Concomitant]
     Indication: ANTIBIOTIC PROPHYLAXIS
     Dosage: 500 MILLIGRAM
     Route: 048
     Dates: start: 20120125, end: 20131107
  12. DAFALGAN [Concomitant]
     Indication: RESPIRATORY TRACT INFECTION
     Route: 048
     Dates: start: 20120623
  13. DUROGESIC [Concomitant]
     Indication: PAIN PROPHYLAXIS
     Dosage: 25 MICROGRAM
     Route: 062
     Dates: start: 20120209
  14. DUROGESIC [Concomitant]
     Dosage: 12.5 MICROGRAM
     Route: 062
     Dates: start: 20110127
  15. FRAXIPARINE [Concomitant]
     Indication: ANTICOAGULANT THERAPY
     Dosage: .4 MILLILITER
     Route: 058
     Dates: start: 20120125
  16. FRAXIPARINE [Concomitant]
     Indication: ANTIPLATELET THERAPY
  17. LORAMET [Concomitant]
     Indication: PROPHYLAXIS
     Dosage: 1 MILLIGRAM
     Route: 048
     Dates: start: 20120223
  18. OMEPRAZOLE [Concomitant]
     Indication: GASTRITIS
     Dosage: 20 MILLIGRAM
     Route: 048
     Dates: start: 20120125
  19. XANAX [Concomitant]
     Indication: DEPRESSION
     Dosage: 1.5 MILLIGRAM
     Route: 048
     Dates: start: 20100914
  20. XANAX [Concomitant]
     Dosage: .5 MILLIGRAM
     Route: 048
     Dates: start: 20121108, end: 20130918
  21. ZOMETA [Concomitant]
     Indication: PLASMA CELL MYELOMA
     Route: 041
     Dates: start: 20120126
  22. ZOVIRAX [Concomitant]
     Indication: ANTIVIRAL PROPHYLAXIS
     Dosage: 800 MILLIGRAM
     Route: 048
     Dates: start: 20120125
  23. CARDIOASPIRINE [Concomitant]
     Indication: ANTICOAGULANT THERAPY
     Dosage: 100 MILLIGRAM
     Route: 048
     Dates: start: 20120322
  24. CARDIOASPIRINE [Concomitant]
     Indication: ANTIPLATELET THERAPY
  25. LYSOMUCIL [Concomitant]
     Indication: UPPER RESPIRATORY TRACT INFECTION
     Dosage: 600 MILLIGRAM
     Route: 048
     Dates: start: 20130708, end: 20130709

REACTIONS (1)
  - Hypokalaemia [Recovered/Resolved]
